FAERS Safety Report 9682770 (Version 1)
Quarter: 2013Q4

REPORT INFORMATION
  Report Type: Spontaneous
  Country: US (occurrence: US)
  Receive Date: 20131112
  Receipt Date: 20131112
  Transmission Date: 20140711
  Serious: Yes (Death, Other)
  Sender: FDA-Public Use
  Company Number: US-JNJFOC-20131104721

PATIENT
  Sex: 0

DRUGS (6)
  1. DOXORUBICIN [Suspect]
     Indication: NON-HODGKIN^S LYMPHOMA
     Dosage: FOR 5 CYCLES
     Route: 042
  2. CYCLOPHOSPHAMIDE [Suspect]
     Indication: NON-HODGKIN^S LYMPHOMA
     Dosage: FOR 5 CYCLES
     Route: 042
  3. VINCRISTINE [Suspect]
     Indication: NON-HODGKIN^S LYMPHOMA
     Dosage: FOR 5 CYCLES
     Route: 065
  4. PREDNISONE [Suspect]
     Indication: NON-HODGKIN^S LYMPHOMA
     Dosage: FOR 5 CYCLES
     Route: 065
  5. RITUXIMAB [Suspect]
     Indication: NON-HODGKIN^S LYMPHOMA
     Dosage: FOR 5 CYCLES
     Route: 065
  6. RADIOTHERAPY [Suspect]
     Indication: TRANSPLANT
     Route: 065

REACTIONS (19)
  - Death [Fatal]
  - Disease progression [Fatal]
  - Neutropenic infection [Fatal]
  - Lung disorder [Fatal]
  - Non-Hodgkin^s lymphoma recurrent [Fatal]
  - Thyroid cancer [Unknown]
  - Skin cancer [Unknown]
  - Infection [Unknown]
  - Gastrointestinal disorder [Unknown]
  - Metabolic disorder [Unknown]
  - Cardiovascular disorder [Unknown]
  - Nervous system disorder [Unknown]
  - Dyspnoea [Unknown]
  - Hyperglycaemia [Unknown]
  - Hypoxia [Unknown]
  - Liver disorder [Unknown]
  - Breast cancer [Unknown]
  - Renal cancer [Unknown]
  - Treatment noncompliance [Unknown]
